FAERS Safety Report 21891481 (Version 1)
Quarter: 2023Q1

REPORT INFORMATION
  Report Type: Report from Study
  Country: US (occurrence: US)
  Receive Date: 20230120
  Receipt Date: 20230120
  Transmission Date: 20230418
  Serious: No
  Sender: FDA-Public Use
  Company Number: US-ABBVIE-4245252

PATIENT
  Sex: Male

DRUGS (1)
  1. HUMIRA [Suspect]
     Active Substance: ADALIMUMAB
     Indication: Psoriatic arthropathy
     Dosage: CITRATE FREE?EVENT START DATE, AND TEST DATE 2022?STRENGTH: 40 MG
     Route: 058
     Dates: start: 20220421

REACTIONS (1)
  - Blood test abnormal [Not Recovered/Not Resolved]
